FAERS Safety Report 21505290 (Version 1)
Quarter: 2022Q4

REPORT INFORMATION
  Report Type: Report from Study
  Country: US (occurrence: US)
  Receive Date: 20221026
  Receipt Date: 20221026
  Transmission Date: 20230113
  Serious: Yes (Other)
  Sender: FDA-Public Use
  Company Number: US-ABBVIE-4170687

PATIENT
  Sex: Female

DRUGS (1)
  1. HUMIRA [Suspect]
     Active Substance: ADALIMUMAB
     Indication: Rheumatoid arthritis
     Dosage: 40MG/0.4ML, STRENGTH: 40 MG
     Route: 058

REACTIONS (8)
  - Deafness unilateral [Unknown]
  - Fatigue [Unknown]
  - Wrong technique in product usage process [Unknown]
  - Overweight [Unknown]
  - Speech disorder [Unknown]
  - Back pain [Unknown]
  - Chronic obstructive pulmonary disease [Unknown]
  - Weight increased [Unknown]
